FAERS Safety Report 18966700 (Version 1)
Quarter: 2021Q1

REPORT INFORMATION
  Report Type: Spontaneous
  Country: AR (occurrence: AR)
  Receive Date: 20210303
  Receipt Date: 20210303
  Transmission Date: 20210420
  Serious: Yes (Hospitalization)
  Sender: FDA-Public Use
  Company Number: AR-BIOMARINAP-AR-2021-134478

PATIENT
  Age: 6 Year
  Sex: Female

DRUGS (1)
  1. BRINEURA [Suspect]
     Active Substance: CERLIPONASE ALFA
     Indication: PRODUCT USED FOR UNKNOWN INDICATION
     Dosage: UNK
     Route: 020
     Dates: start: 20180406

REACTIONS (4)
  - Dystonia [Unknown]
  - Pyrexia [Unknown]
  - Vomiting [Unknown]
  - CSF cell count increased [Unknown]

NARRATIVE: CASE EVENT DATE: 20210112
